FAERS Safety Report 11269466 (Version 2)
Quarter: 2015Q3

REPORT INFORMATION
  Report Type: Spontaneous
  Country: US (occurrence: US)
  Receive Date: 20150714
  Receipt Date: 20150908
  Transmission Date: 20151125
  Serious: Yes (Hospitalization, Other)
  Sender: FDA-Public Use
  Company Number: US-EMD SERONO-7113765

PATIENT
  Age: 57 Year
  Sex: Female

DRUGS (3)
  1. REBIF [Suspect]
     Active Substance: INTERFERON BETA-1A
     Indication: PRODUCT USED FOR UNKNOWN INDICATION
     Route: 058
     Dates: start: 201110, end: 20120223
  2. REBIF [Suspect]
     Active Substance: INTERFERON BETA-1A
     Route: 058
     Dates: start: 20141013, end: 201506
  3. REBIF [Suspect]
     Active Substance: INTERFERON BETA-1A
     Route: 058

REACTIONS (6)
  - Depression [Recovered/Resolved]
  - Suicide attempt [Recovered/Resolved]
  - Affective disorder [Recovered/Resolved]
  - Anxiety [Recovered/Resolved]
  - Angina pectoris [Recovered/Resolved]
  - Suicidal ideation [Recovered/Resolved]

NARRATIVE: CASE EVENT DATE: 20120204
